FAERS Safety Report 6944780-X (Version None)
Quarter: 2010Q3

REPORT INFORMATION
  Report Type: 
  Country: None (occurrence: None)
  Receive Date: 20100827
  Receipt Date: 20100820
  Transmission Date: 20110219
  Serious: Yes (Hospitalization, Other)
  Sender: FDA-Public Use
  Company Number: US-BAYER-200939822NA

PATIENT
  Age: 47 Year
  Sex: Female
  Weight: 80 kg

DRUGS (1)
  1. MIRENA [Suspect]
     Indication: CONTRACEPTION
     Dosage: CONTINUOUS
     Route: 015
     Dates: start: 20070417, end: 20091123

REACTIONS (8)
  - ABDOMINAL PAIN LOWER [None]
  - AMENORRHOEA [None]
  - BREAST CANCER FEMALE [None]
  - COITAL BLEEDING [None]
  - HEADACHE [None]
  - MOOD SWINGS [None]
  - OVARIAN CYST [None]
  - WEIGHT INCREASED [None]
